FAERS Safety Report 12893979 (Version 1)
Quarter: 2016Q4

REPORT INFORMATION
  Report Type: Spontaneous
  Country: CH (occurrence: CH)
  Receive Date: 20161028
  Receipt Date: 20161028
  Transmission Date: 20170207
  Serious: Yes (Hospitalization)
  Sender: FDA-Public Use
  Company Number: CH-SA-2016SA196511

PATIENT
  Age: 86 Year
  Sex: Female
  Weight: 74.7 kg

DRUGS (11)
  1. TORASEMID [Suspect]
     Active Substance: TORSEMIDE
     Route: 048
     Dates: end: 201609
  2. SINTROM [Concomitant]
     Active Substance: ACENOCOUMAROL
     Route: 048
  3. LANTUS [Suspect]
     Active Substance: INSULIN GLARGINE
     Dosage: PRE FILLED SYRINGES, PENS
     Route: 058
     Dates: start: 201608
  4. TRIATEC [Suspect]
     Active Substance: RAMIPRIL
     Route: 065
  5. CONCOR [Suspect]
     Active Substance: BISOPROLOL FUMARATE
     Route: 048
  6. TRIATEC [Suspect]
     Active Substance: RAMIPRIL
     Route: 048
  7. PANTOZOL [Concomitant]
     Active Substance: PANTOPRAZOLE SODIUM
     Route: 048
  8. LYRICA [Concomitant]
     Active Substance: PREGABALIN
     Route: 048
  9. LANTUS [Suspect]
     Active Substance: INSULIN GLARGINE
     Route: 058
  10. STILNOX [Suspect]
     Active Substance: ZOLPIDEM TARTRATE
     Route: 048
     Dates: end: 201609
  11. CONCOR [Suspect]
     Active Substance: BISOPROLOL FUMARATE
     Route: 065

REACTIONS (2)
  - Presyncope [Recovered/Resolved]
  - Head injury [Recovered/Resolved]

NARRATIVE: CASE EVENT DATE: 20160907
